FAERS Safety Report 24975702 (Version 1)
Quarter: 2025Q1

REPORT INFORMATION
  Report Type: Spontaneous
  Country: ES (occurrence: ES)
  Receive Date: 20250217
  Receipt Date: 20250217
  Transmission Date: 20250409
  Serious: Yes (Life-Threatening, Hospitalization, Other)
  Sender: NOVO NORDISK
  Company Number: ES-NOVOPROD-1367578

PATIENT
  Age: 12 Year
  Sex: Female

DRUGS (4)
  1. NOVOSEVEN [Suspect]
     Active Substance: COAGULATION FACTOR VIIA RECOMBINANT HUMAN
     Indication: Glanzmann^s disease
     Dosage: 90 ?G/KG, QW
     Route: 042
  2. NOVOSEVEN [Suspect]
     Active Substance: COAGULATION FACTOR VIIA RECOMBINANT HUMAN
     Dosage: UNK (USUAL WEEKLY PROPHYLACTIC DOSE )
     Route: 042
  3. NOVOSEVEN [Suspect]
     Active Substance: COAGULATION FACTOR VIIA RECOMBINANT HUMAN
     Dosage: 5 MG/8 HOURS
     Route: 042
  4. NOVOSEVEN [Suspect]
     Active Substance: COAGULATION FACTOR VIIA RECOMBINANT HUMAN
     Indication: Prophylaxis
     Dosage: DOSE INCREASED (EXTRA DOSES OF NOVOSEVEN 8 MG EVERY 6 HOURS )
     Route: 042

REACTIONS (8)
  - Posterior reversible encephalopathy syndrome [Not Recovered/Not Resolved]
  - Respiratory distress [Unknown]
  - Blood pressure inadequately controlled [Unknown]
  - Epistaxis [Recovered/Resolved]
  - Melaena [Recovered/Resolved]
  - Urinary tract infection [Recovered/Resolved]
  - Haematuria [Recovered/Resolved]
  - Off label use [Not Recovered/Not Resolved]
